FAERS Safety Report 16819274 (Version 1)
Quarter: 2019Q3

REPORT INFORMATION
  Report Type: Spontaneous
  Country: US (occurrence: US)
  Receive Date: 20190917
  Receipt Date: 20190917
  Transmission Date: 20191005
  Serious: Yes (Hospitalization)
  Sender: FDA-Public Use
  Company Number: US-DSJP-DSU-2018-139136

PATIENT

DRUGS (1)
  1. OLMESARTAN AG [Suspect]
     Active Substance: OLMESARTAN MEDOXOMIL
     Indication: PRODUCT USED FOR UNKNOWN INDICATION
     Dosage: UNK
     Route: 065

REACTIONS (8)
  - Blood creatinine increased [Unknown]
  - Dysphonia [Unknown]
  - Heart rate increased [Unknown]
  - Skin exfoliation [Unknown]
  - Gingival bleeding [Unknown]
  - Rash [Unknown]
  - Blood pressure increased [Unknown]
  - Unevaluable event [Unknown]
